FAERS Safety Report 6785919-9 (Version None)
Quarter: 2010Q2

REPORT INFORMATION
  Report Type: 
  Country: None (occurrence: None)
  Receive Date: 20100623
  Receipt Date: 20100616
  Transmission Date: 20101027
  Serious: Yes (Death)
  Sender: FDA-Public Use
  Company Number: MX-ELI_LILLY_AND_COMPANY-MX201006004966

PATIENT
  Age: 49 Year
  Sex: Female

DRUGS (1)
  1. HUMALOG MIX 75/25 [Suspect]
     Dosage: UNK, UNKNOWN
     Route: 058
     Dates: start: 20100318, end: 20100330

REACTIONS (2)
  - DIABETES MELLITUS [None]
  - HEPATIC CIRRHOSIS [None]
